FAERS Safety Report 20734098 (Version 1)
Quarter: 2022Q2

REPORT INFORMATION
  Report Type: Report from Study
  Country: US (occurrence: US)
  Receive Date: 20220421
  Receipt Date: 20220421
  Transmission Date: 20220721
  Serious: Yes (Hospitalization, Other)
  Sender: FDA-Public Use
  Company Number: US-ABBVIE-22K-163-4364439-00

PATIENT
  Age: 77 Year
  Sex: Female

DRUGS (1)
  1. IMBRUVICA [Suspect]
     Active Substance: IBRUTINIB
     Indication: Chronic lymphocytic leukaemia
     Route: 048

REACTIONS (10)
  - Rib fracture [Unknown]
  - Dementia [Unknown]
  - Fall [Unknown]
  - Fall [Unknown]
  - Diabetic retinopathy [Unknown]
  - Confusional state [Unknown]
  - Ulna fracture [Unknown]
  - Visual impairment [Unknown]
  - COVID-19 [Unknown]
  - Pain [Unknown]

NARRATIVE: CASE EVENT DATE: 20211201
